FAERS Safety Report 9180631 (Version 1)
Quarter: 2013Q1

REPORT INFORMATION
  Report Type: Spontaneous
  Country: AT (occurrence: None)
  Receive Date: 20130320
  Receipt Date: 20130320
  Transmission Date: 20140127
  Serious: Yes (Hospitalization)
  Sender: FDA-Public Use
  Company Number: 2013-04908

PATIENT
  Age: 21 Year
  Sex: Female

DRUGS (1)
  1. IBUPROFEN [Suspect]
     Indication: INFLUENZA
     Dates: start: 201209, end: 201209

REACTIONS (3)
  - Type IV hypersensitivity reaction [None]
  - Rash maculo-papular [None]
  - Pyrexia [None]
